FAERS Safety Report 17108308 (Version 1)
Quarter: 2019Q4

REPORT INFORMATION
  Report Type: Spontaneous
  Country: US (occurrence: US)
  Receive Date: 20191203
  Receipt Date: 20191203
  Transmission Date: 20200122
  Serious: Yes (Hospitalization)
  Sender: FDA-Public Use
  Company Number: US-NAPPMUNDI-USA-2019-0149234

PATIENT
  Sex: Male

DRUGS (2)
  1. BUPRENORPHINE TRANSDERMAL PATCH (SIMILAR TO NDA 21-306) [Suspect]
     Active Substance: BUPRENORPHINE
     Indication: PAIN
     Dosage: 10 MCG/HR, WEEKLY
     Route: 062
     Dates: start: 201909
  2. BUPRENORPHINE. [Suspect]
     Active Substance: BUPRENORPHINE
     Indication: PAIN
     Dosage: 0.5 MG (1/4 MG), UNK
     Route: 048
     Dates: start: 201902, end: 201902

REACTIONS (14)
  - Headache [Unknown]
  - Nightmare [Unknown]
  - Bone pain [Unknown]
  - Depression [Unknown]
  - Chest pain [Unknown]
  - Myalgia [Unknown]
  - Blood urine present [Unknown]
  - Nausea [Unknown]
  - Haematochezia [Unknown]
  - Dizziness [Unknown]
  - Vomiting [Unknown]
  - Dehydration [Unknown]
  - Asthenia [Unknown]
  - Confusional state [Unknown]

NARRATIVE: CASE EVENT DATE: 201902
